FAERS Safety Report 10390414 (Version 3)
Quarter: 2015Q4

REPORT INFORMATION
  Report Type: Spontaneous
  Country: US (occurrence: US)
  Receive Date: 20140818
  Receipt Date: 20151116
  Transmission Date: 20160304
  Serious: No
  Sender: FDA-Public Use
  Company Number: US-PFIZER INC-2014229399

PATIENT
  Age: 87 Year
  Sex: Female

DRUGS (8)
  1. NEURONTIN [Suspect]
     Active Substance: GABAPENTIN
     Dosage: UNK
     Dates: start: 2014
  2. AMLODIPINE [Concomitant]
     Active Substance: AMLODIPINE BESYLATE
     Dosage: 2.5 MG, 1X/DAY
  3. LOSARTAN. [Concomitant]
     Active Substance: LOSARTAN
     Dosage: 100 MG, 1X/DAY
  4. NEURONTIN [Suspect]
     Active Substance: GABAPENTIN
     Dosage: UNK, DAILY
     Dates: start: 2014
  5. NEURONTIN [Suspect]
     Active Substance: GABAPENTIN
     Dosage: UNK UNK, 3X/DAY
     Dates: start: 2014
  6. NEURONTIN [Suspect]
     Active Substance: GABAPENTIN
     Dosage: UNK UNK, 2X/DAY
     Dates: start: 2014
  7. PREGABALIN. [Concomitant]
     Active Substance: PREGABALIN
     Dosage: 50 MG, 2X/DAY
     Route: 048
  8. CLONAZEPAM. [Concomitant]
     Active Substance: CLONAZEPAM
     Dosage: 0.25 MG, 2X/DAY

REACTIONS (5)
  - Somnolence [Unknown]
  - Dizziness [Unknown]
  - Sedation [Unknown]
  - Confusional state [Unknown]
  - Fatigue [Unknown]

NARRATIVE: CASE EVENT DATE: 2014
